FAERS Safety Report 19323189 (Version 1)
Quarter: 2021Q2

REPORT INFORMATION
  Report Type: Spontaneous
  Country: US (occurrence: US)
  Receive Date: 20210528
  Receipt Date: 20210528
  Transmission Date: 20210717
  Serious: No
  Sender: FDA-Public Use
  Company Number: US-TEVA-2021-US-1916393

PATIENT
  Sex: Male

DRUGS (1)
  1. ALBUTEROL HFA [Suspect]
     Active Substance: ALBUTEROL SULFATE
     Indication: ASTHMA
     Dosage: DOSAGE FORM: INHALATION ? AEROSOL
     Route: 065

REACTIONS (3)
  - Product formulation issue [Unknown]
  - Asthma [Unknown]
  - Adverse drug reaction [Unknown]
